FAERS Safety Report 8314628-X (Version None)
Quarter: 2012Q2

REPORT INFORMATION
  Report Type: 
  Country: None (occurrence: None)
  Receive Date: 20120426
  Receipt Date: 20120413
  Transmission Date: 20120825
  Serious: Yes (Other)
  Sender: FDA-Public Use
  Company Number: CL-ROCHE-1060265

PATIENT
  Sex: Male
  Weight: 65 kg

DRUGS (1)
  1. XELODA [Suspect]
     Indication: GASTRIC CANCER
     Dosage: FOR 14 DAYS
     Route: 048
     Dates: start: 20111226, end: 20120405

REACTIONS (3)
  - METASTASES TO LUNG [None]
  - METASTASES TO LARGE INTESTINE [None]
  - METASTASES TO LIVER [None]
